FAERS Safety Report 18322421 (Version 1)
Quarter: 2020Q3

REPORT INFORMATION
  Report Type: Spontaneous
  Country: US (occurrence: US)
  Receive Date: 20200928
  Receipt Date: 20200928
  Transmission Date: 20201103
  Serious: Yes (Death, Hospitalization)
  Sender: FDA-Public Use
  Company Number: None

PATIENT
  Age: 82 Year
  Sex: Female

DRUGS (2)
  1. RAYALDEE [Suspect]
     Active Substance: CALCIFEDIOL
     Indication: HYPERPARATHYROIDISM
     Route: 048
     Dates: start: 20200326, end: 20200925
  2. RAYALDEE [Suspect]
     Active Substance: CALCIFEDIOL
     Indication: CHRONIC KIDNEY DISEASE
     Route: 048
     Dates: start: 20200326, end: 20200925

REACTIONS (2)
  - COVID-19 [None]
  - Unevaluable event [None]

NARRATIVE: CASE EVENT DATE: 20200925
